FAERS Safety Report 10018288 (Version 2)
Quarter: 2014Q1

REPORT INFORMATION
  Report Type: Spontaneous
  Country: US (occurrence: US)
  Receive Date: 20140318
  Receipt Date: 20140318
  Transmission Date: 20141002
  Serious: Yes (Hospitalization)
  Sender: FDA-Public Use
  Company Number: US-BRISTOL-MYERS SQUIBB COMPANY-19884501

PATIENT
  Age: 58 Year
  Sex: Male
  Weight: 104 kg

DRUGS (25)
  1. ERBITUX [Suspect]
     Indication: RECTAL CANCER
     Route: 042
     Dates: start: 20131203
  2. BENADRYL [Concomitant]
     Route: 042
  3. ATIVAN [Concomitant]
     Route: 042
  4. PREDNISONE [Concomitant]
     Dosage: FOR 3 DAYS
  5. FLOMAX [Concomitant]
  6. LIPITOR [Concomitant]
     Dosage: 1DF= 20 UNITS NOS
  7. OMEGA 3 FATTY ACID [Concomitant]
     Dosage: 1DF= 2 CAPSULES
  8. BYSTOLIC [Concomitant]
  9. ALTACE [Concomitant]
  10. ASPIRIN [Concomitant]
  11. CYMBALTA [Concomitant]
  12. ZANTAC [Concomitant]
     Dosage: 1DF= 150 UNITS NOS
  13. GLUCOPHAGE [Concomitant]
  14. HUMALOG [Concomitant]
     Dosage: HUMALOG 75/25.?1DF=25 UNITS IN THE MORNING + 45 UNITS AT NIGHT
  15. VITAMIN B12 [Concomitant]
  16. FOLIC ACID [Concomitant]
  17. MULTIVITAMIN [Concomitant]
  18. LOMOTIL [Concomitant]
     Dosage: TAKE 2 TABLET BY ORAL ROUTE 4 TIMES EVERY DAY AS NEEDED
  19. KEFLEX [Concomitant]
     Dosage: CAPS
     Route: 048
  20. RAMIPRIL [Concomitant]
     Route: 048
  21. METFORMIN HCL [Concomitant]
     Dosage: WITH MORNING AND EVENING MEALS.?TABS
     Route: 048
  22. LOVAZA [Concomitant]
     Dosage: 2 CAPS(2G)
     Route: 048
  23. TAMSULOSIN HCL [Concomitant]
     Dosage: EVERY DAY 1/2 HOUR FOLLOWING THE SAME MEAL EACH DAY
     Route: 048
  24. RANITIDINE HCL [Concomitant]
     Route: 048
  25. METAMUCIL [Concomitant]

REACTIONS (1)
  - Anaphylactic reaction [Unknown]
